FAERS Safety Report 20653579 (Version 2)
Quarter: 2022Q2

REPORT INFORMATION
  Report Type: Spontaneous
  Country: US (occurrence: US)
  Receive Date: 20220330
  Receipt Date: 20220425
  Transmission Date: 20220720
  Serious: Yes (Other)
  Sender: FDA-Public Use
  Company Number: US-PFIZER INC-202200447374

PATIENT
  Age: 63 Year
  Sex: Female

DRUGS (6)
  1. IBRANCE [Suspect]
     Active Substance: PALBOCICLIB
     Dosage: (DAILY FOR 21 DAYS ON, THEN STOP TAKING FOR 7 DAYS, REPEAT CYCLE)
     Route: 048
     Dates: start: 20220209
  2. IBRANCE [Suspect]
     Active Substance: PALBOCICLIB
     Dosage: (DAILY FOR 21 DAYS ON, THEN STOP TAKING FOR 7 DAYS, REPEAT CYCLE)
     Route: 048
     Dates: start: 20220310, end: 20220330
  3. LETROZOLE [Concomitant]
     Active Substance: LETROZOLE
     Dosage: UNK
  4. VITAMIN D3 [Concomitant]
     Active Substance: CHOLECALCIFEROL
     Dosage: UNK
  5. ASPIRIN [Concomitant]
     Active Substance: ASPIRIN
     Dosage: UNK
  6. CALCIUM MAGNESIUM ZINC [CALCIUM;MAGNESIUM;ZINC] [Concomitant]
     Dosage: UNK

REACTIONS (3)
  - Neutrophil count decreased [Unknown]
  - White blood cell count decreased [Unknown]
  - Fatigue [Unknown]
